FAERS Safety Report 19426382 (Version 1)
Quarter: 2021Q2

REPORT INFORMATION
  Report Type: Spontaneous
  Country: US (occurrence: US)
  Receive Date: 20210617
  Receipt Date: 20210617
  Transmission Date: 20210717
  Serious: No
  Sender: FDA-Public Use
  Company Number: US-AUROBINDO-AUR-APL-2021-009875

PATIENT
  Sex: Female

DRUGS (2)
  1. CIPROFLOXACIN TABLETS USP 500 MG [Suspect]
     Active Substance: CIPROFLOXACIN
     Indication: URINARY TRACT INFECTION
     Dosage: UNK
     Route: 065
     Dates: start: 20210216
  2. COVID?19 VACCINE [Concomitant]
     Indication: IMMUNISATION
     Dosage: UNK, INJECTION TO LEFT ARM AROUND 16:00; SECOND 10:00
     Route: 065
     Dates: start: 20210115

REACTIONS (10)
  - Headache [Unknown]
  - Tremor [Unknown]
  - Urinary tract infection [Unknown]
  - Asthenia [Unknown]
  - Muscular weakness [Unknown]
  - Arthralgia [Unknown]
  - Pain in extremity [Unknown]
  - Vomiting [Unknown]
  - Fatigue [Unknown]
  - Walking aid user [Unknown]

NARRATIVE: CASE EVENT DATE: 20210222
